FAERS Safety Report 24607660 (Version 3)
Quarter: 2024Q4

REPORT INFORMATION
  Report Type: Spontaneous
  Country: ES (occurrence: ES)
  Receive Date: 20241112
  Receipt Date: 20241123
  Transmission Date: 20250115
  Serious: Yes (Hospitalization)
  Sender: AUROBINDO
  Company Number: ES-GILEAD-2024-0692694

PATIENT
  Sex: Male
  Weight: 74.4 kg

DRUGS (45)
  1. CARBOPLATIN [Suspect]
     Active Substance: CARBOPLATIN
     Indication: Non-small cell lung cancer metastatic
     Dosage: 550 MILLIGRAM
     Route: 042
     Dates: start: 20231201, end: 20231201
  2. CARBOPLATIN [Suspect]
     Active Substance: CARBOPLATIN
     Dosage: 550 MILLIGRAM
     Route: 042
     Dates: start: 20231222, end: 20231222
  3. CARBOPLATIN [Suspect]
     Active Substance: CARBOPLATIN
     Dosage: 515 MILLIGRAM
     Route: 042
     Dates: start: 20240112, end: 20240112
  4. CARBOPLATIN [Suspect]
     Active Substance: CARBOPLATIN
     Dosage: 515 MILLIGRAM
     Route: 042
     Dates: start: 20240202, end: 20240202
  5. PEMETREXED [Suspect]
     Active Substance: PEMETREXED
     Indication: Non-small cell lung cancer metastatic
     Dosage: 925 MILLIGRAM
     Route: 042
     Dates: start: 20231201, end: 20231201
  6. PEMETREXED [Suspect]
     Active Substance: PEMETREXED
     Dosage: 925 MILLIGRAM
     Route: 042
     Dates: start: 20231222, end: 20231222
  7. PEMETREXED [Suspect]
     Active Substance: PEMETREXED
     Dosage: 895 MILLIGRAM
     Route: 042
     Dates: start: 20240112, end: 20240112
  8. PEMETREXED [Suspect]
     Active Substance: PEMETREXED
     Dosage: 895 MILLIGRAM
     Route: 042
     Dates: start: 20240202, end: 20240202
  9. PEMETREXED [Suspect]
     Active Substance: PEMETREXED
     Dosage: 895 MILLIGRAM
     Route: 042
     Dates: start: 20240223, end: 20240223
  10. PEMETREXED [Suspect]
     Active Substance: PEMETREXED
     Dosage: 910 MILLIGRAM
     Route: 042
     Dates: start: 20240315, end: 20240315
  11. PEMETREXED [Suspect]
     Active Substance: PEMETREXED
     Dosage: 910 MILLIGRAM
     Route: 042
     Dates: start: 20240405, end: 20240405
  12. PEMETREXED [Suspect]
     Active Substance: PEMETREXED
     Dosage: 910 MILLIGRAM
     Route: 042
     Dates: start: 20240426, end: 20240426
  13. PEMETREXED [Suspect]
     Active Substance: PEMETREXED
     Dosage: 910 MILLIGRAM
     Route: 042
     Dates: start: 20240517, end: 20240517
  14. PEMETREXED [Suspect]
     Active Substance: PEMETREXED
     Dosage: 910 MILLIGRAM
     Route: 042
     Dates: start: 20240607, end: 20240607
  15. PEMETREXED [Suspect]
     Active Substance: PEMETREXED
     Dosage: 683 MILLIGRAM
     Route: 042
     Dates: start: 20240628, end: 20240628
  16. PEMETREXED [Suspect]
     Active Substance: PEMETREXED
     Dosage: 683 MILLIGRAM
     Route: 042
     Dates: start: 20240729, end: 20240729
  17. PEMETREXED [Suspect]
     Active Substance: PEMETREXED
     Dosage: 683 MILLIGRAM
     Route: 042
     Dates: start: 20240820, end: 20240820
  18. PEMETREXED [Suspect]
     Active Substance: PEMETREXED
     Dosage: 683 MILLIGRAM
     Route: 042
     Dates: start: 20240920, end: 20240920
  19. PEMETREXED [Suspect]
     Active Substance: PEMETREXED
     Dosage: 455 MILLIGRAM
     Route: 042
     Dates: start: 20241014, end: 20241014
  20. ZIMBERELIMAB [Suspect]
     Active Substance: ZIMBERELIMAB
     Indication: Non-small cell lung cancer metastatic
     Dosage: 360 MILLIGRAM
     Route: 042
     Dates: start: 20231201, end: 20231201
  21. ZIMBERELIMAB [Suspect]
     Active Substance: ZIMBERELIMAB
     Dosage: 360 MILLIGRAM
     Route: 042
     Dates: start: 20231222, end: 20231222
  22. ZIMBERELIMAB [Suspect]
     Active Substance: ZIMBERELIMAB
     Dosage: 360 MILLIGRAM
     Route: 042
     Dates: start: 20240112, end: 20240112
  23. ZIMBERELIMAB [Suspect]
     Active Substance: ZIMBERELIMAB
     Dosage: 360 MILLIGRAM
     Route: 042
     Dates: start: 20240202, end: 20240202
  24. ZIMBERELIMAB [Suspect]
     Active Substance: ZIMBERELIMAB
     Dosage: 360 MILLIGRAM
     Route: 042
     Dates: start: 20240223, end: 20240223
  25. ZIMBERELIMAB [Suspect]
     Active Substance: ZIMBERELIMAB
     Dosage: 360 MILLIGRAM
     Route: 042
     Dates: start: 20240315, end: 20240315
  26. ZIMBERELIMAB [Suspect]
     Active Substance: ZIMBERELIMAB
     Dosage: 360 MILLIGRAM
     Route: 042
     Dates: start: 20240405, end: 20240405
  27. ZIMBERELIMAB [Suspect]
     Active Substance: ZIMBERELIMAB
     Dosage: 360 MILLIGRAM
     Route: 042
     Dates: start: 20240426, end: 20240426
  28. ZIMBERELIMAB [Suspect]
     Active Substance: ZIMBERELIMAB
     Dosage: 360 MILLIGRAM
     Route: 042
     Dates: start: 20240517, end: 20240517
  29. ZIMBERELIMAB [Suspect]
     Active Substance: ZIMBERELIMAB
     Dosage: 360 MILLIGRAM
     Route: 042
     Dates: start: 20240607, end: 20240607
  30. ZIMBERELIMAB [Suspect]
     Active Substance: ZIMBERELIMAB
     Dosage: 360 MILLIGRAM
     Route: 042
     Dates: start: 20240628, end: 20240628
  31. ZIMBERELIMAB [Suspect]
     Active Substance: ZIMBERELIMAB
     Dosage: 360 MILLIGRAM
     Route: 042
     Dates: start: 20240729, end: 20240729
  32. ZIMBERELIMAB [Suspect]
     Active Substance: ZIMBERELIMAB
     Dosage: 360 MILLIGRAM
     Route: 042
     Dates: start: 20240820, end: 20240820
  33. ZIMBERELIMAB [Suspect]
     Active Substance: ZIMBERELIMAB
     Dosage: 360 MILLIGRAM
     Route: 042
     Dates: start: 20240920, end: 20240920
  34. ZIMBERELIMAB [Suspect]
     Active Substance: ZIMBERELIMAB
     Dosage: 360 MILLIGRAM
     Route: 042
     Dates: start: 20241014, end: 20241014
  35. CIPROFLOXACIN [Concomitant]
     Active Substance: CIPROFLOXACIN
     Indication: Urinary tract infection
     Dosage: UNK
     Route: 048
     Dates: start: 20240314
  36. DEXAMETHASONE [Concomitant]
     Active Substance: DEXAMETHASONE
     Indication: Premedication
     Dosage: UNK
     Route: 048
     Dates: start: 20231130
  37. ENALAPRIL [Concomitant]
     Active Substance: ENALAPRIL
     Indication: Hypertension
     Dosage: UNK
     Route: 048
     Dates: start: 202310
  38. DEXKETOPROFEN TROMETAMOL [Concomitant]
     Active Substance: DEXKETOPROFEN TROMETAMOL
     Indication: Pain
     Dosage: UNK
     Route: 048
     Dates: start: 20231130
  39. FOLIC ACID [Concomitant]
     Active Substance: FOLIC ACID
     Indication: Premedication
     Dosage: UNK
     Route: 048
     Dates: start: 20231123
  40. FOSAPREPITANT [Concomitant]
     Active Substance: FOSAPREPITANT
     Indication: Premedication
     Dosage: UNK
     Route: 042
     Dates: start: 20240112
  41. FENTANYL [Concomitant]
     Active Substance: FENTANYL
     Indication: Pain
     Dosage: UNK
     Route: 062
     Dates: start: 20240208
  42. LYRICA [Concomitant]
     Active Substance: PREGABALIN
     Indication: Pain
     Dosage: UNK
     Route: 048
     Dates: start: 202310
  43. CYANOCOBALAMIN [Concomitant]
     Active Substance: CYANOCOBALAMIN
     Indication: Premedication
     Dosage: UNK
     Route: 030
     Dates: start: 20231123
  44. CEFTRIAXONE [Concomitant]
     Active Substance: CEFTRIAXONE
     Indication: Gastroenteritis
     Dosage: UNK
     Route: 042
     Dates: start: 20241028, end: 20241103
  45. Saline hipertonico [Concomitant]
     Indication: Gastroenteritis
     Dosage: UNK
     Route: 042
     Dates: start: 20241028, end: 20241104

REACTIONS (2)
  - Respiratory tract infection [Not Recovered/Not Resolved]
  - Gastroenteritis [Recovered/Resolved]

NARRATIVE: CASE EVENT DATE: 20241028
